FAERS Safety Report 22256415 (Version 7)
Quarter: 2023Q4

REPORT INFORMATION
  Report Type: Spontaneous
  Country: US (occurrence: US)
  Receive Date: 20230426
  Receipt Date: 20231218
  Transmission Date: 20240110
  Serious: Yes (Hospitalization, Other)
  Sender: FDA-Public Use
  Company Number: US-ALXN-A202305427

PATIENT
  Age: 37 Year
  Sex: Female
  Weight: 55.6 kg

DRUGS (38)
  1. ULTOMIRIS [Suspect]
     Active Substance: RAVULIZUMAB-CWVZ
     Indication: Atypical haemolytic uraemic syndrome
     Dosage: UNK, EVERY 8 WEEK
     Route: 042
     Dates: start: 20221212
  2. MYCOPHENOLATE MOFETIL [Suspect]
     Active Substance: MYCOPHENOLATE MOFETIL
     Indication: Product used for unknown indication
     Dosage: UNK
     Route: 065
  3. TACROLIMUS [Concomitant]
     Active Substance: TACROLIMUS
     Indication: Product used for unknown indication
     Dosage: 2 MG, QD
     Route: 065
  4. AMOXIL                             /00249601/ [Concomitant]
     Indication: Product used for unknown indication
     Dosage: 500 MG, QD
     Route: 048
     Dates: end: 20230425
  5. AMOXIL                             /00249601/ [Concomitant]
     Dosage: 500 MG, QD
     Route: 048
     Dates: start: 20230425
  6. DIFLUCAN [Concomitant]
     Active Substance: FLUCONAZOLE
     Indication: Product used for unknown indication
     Dosage: 400 MG, QD
     Route: 048
     Dates: end: 20230425
  7. DIFLUCAN [Concomitant]
     Active Substance: FLUCONAZOLE
     Dosage: 400 MG, QD
     Route: 048
     Dates: start: 20230426
  8. DELTASONE                          /00044701/ [Concomitant]
     Indication: Product used for unknown indication
     Dosage: 5 MG, QD (WITH BREAKFAST)
     Route: 048
     Dates: end: 20230425
  9. DELTASONE                          /00044701/ [Concomitant]
     Dosage: 20 MG, QD (WITH BREAKFAST)
     Route: 048
     Dates: start: 20230328
  10. DELTASONE                          /00044701/ [Concomitant]
     Dosage: 50 MG, QD (WITH BREAKFAST)
     Route: 048
  11. DELTASONE                          /00044701/ [Concomitant]
     Dosage: 40 MG, QD
     Route: 048
  12. DELTASONE                          /00044701/ [Concomitant]
     Dosage: 30 MG, QD
     Route: 048
  13. DELTASONE                          /00044701/ [Concomitant]
     Dosage: 20 MG, QD
     Route: 048
  14. DELTASONE                          /00044701/ [Concomitant]
     Dosage: 10 MG, QD
     Route: 048
  15. DELTASONE                          /00044701/ [Concomitant]
     Dosage: 5 MG, QD (WITH BREAKFAST)
     Route: 048
     Dates: start: 20230426
  16. ENVARSUS XR [Concomitant]
     Active Substance: TACROLIMUS
     Indication: Product used for unknown indication
     Dosage: 1.5 MG, QD (EVERY MORNING EMPTY STOMACH)
     Route: 048
     Dates: end: 20230425
  17. ENVARSUS XR [Concomitant]
     Active Substance: TACROLIMUS
     Dosage: 4 MG, QD (EVERY MORNING, BEFORE BREAKFAST EMPTY STOMACH)
     Route: 048
     Dates: start: 20230329
  18. ENVARSUS XR [Concomitant]
     Active Substance: TACROLIMUS
     Dosage: 1.5 MG, QD (EVERY MORNING EMPTY STOMACH)
     Route: 048
     Dates: start: 20230425
  19. VALCYTE [Concomitant]
     Active Substance: VALGANCICLOVIR HYDROCHLORIDE
     Indication: Product used for unknown indication
     Dosage: 450 MG, QD
     Route: 048
     Dates: start: 20230328
  20. VALCYTE [Concomitant]
     Active Substance: VALGANCICLOVIR HYDROCHLORIDE
     Dosage: 450 MG, QOD
     Route: 048
     Dates: end: 20230424
  21. VALCYTE [Concomitant]
     Active Substance: VALGANCICLOVIR HYDROCHLORIDE
     Dosage: 450 MG, QOD
     Route: 048
     Dates: start: 20230425
  22. NORVASC [Concomitant]
     Active Substance: AMLODIPINE BESYLATE
     Indication: Renovascular hypertension
     Dosage: 10 MG, QD
     Route: 048
     Dates: start: 20230301
  23. NORVASC [Concomitant]
     Active Substance: AMLODIPINE BESYLATE
     Dosage: 10 MG, QD
     Route: 048
     Dates: end: 20230425
  24. DOCONEXENT [Concomitant]
     Active Substance: DOCONEXENT
     Indication: Mineral supplementation
     Dosage: 28 MG, QD (2 CAPSULES)
     Route: 048
  25. DOCONEXENT [Concomitant]
     Active Substance: DOCONEXENT
     Dosage: 200 MG, QD (2 CAPSULE)
     Route: 048
  26. VITAMIN D3 [Concomitant]
     Active Substance: CHOLECALCIFEROL
     Indication: Product used for unknown indication
     Dosage: 2000 UT, QD
     Route: 048
  27. COZAAR [Concomitant]
     Active Substance: LOSARTAN POTASSIUM
     Indication: Product used for unknown indication
     Dosage: 100 MG, QD
     Route: 048
     Dates: start: 20230228
  28. COZAAR [Concomitant]
     Active Substance: LOSARTAN POTASSIUM
     Dosage: 100 MG, QD
     Route: 048
     Dates: end: 20230425
  29. COZAAR [Concomitant]
     Active Substance: LOSARTAN POTASSIUM
     Dosage: 50 MG, QD
     Route: 048
     Dates: start: 20230502
  30. LOPRESSOR [Concomitant]
     Active Substance: METOPROLOL TARTRATE
     Indication: Secondary hypertension
     Dosage: 50 MG, BID
     Route: 048
     Dates: end: 20230425
  31. LOPRESSOR [Concomitant]
     Active Substance: METOPROLOL TARTRATE
     Dosage: 50 MG, BID
     Route: 048
     Dates: start: 20220824
  32. IRON [Concomitant]
     Active Substance: IRON
     Indication: Iron deficiency
     Dosage: UNK
     Route: 065
  33. PRILOSEC [Concomitant]
     Active Substance: OMEPRAZOLE MAGNESIUM
     Indication: Gastrooesophageal reflux disease
     Dosage: 40 MG, QD (1 CAPSULE)
     Route: 048
     Dates: start: 20220516, end: 20230516
  34. SODIUM BICARBONATE [Concomitant]
     Active Substance: SODIUM BICARBONATE
     Indication: Product used for unknown indication
     Dosage: 1300 MG, TID
     Route: 048
     Dates: start: 20220824
  35. SODIUM BICARBONATE [Concomitant]
     Active Substance: SODIUM BICARBONATE
     Dosage: 1300 MG, TID
     Route: 048
     Dates: end: 20230425
  36. ACETAMINOPHEN [Concomitant]
     Active Substance: ACETAMINOPHEN
     Indication: Product used for unknown indication
     Dosage: 650 MG, QD
     Route: 048
  37. AMPHOTERICIN B [Concomitant]
     Active Substance: AMPHOTERICIN B
     Indication: Product used for unknown indication
     Dosage: 5 MG/KG, SINGLE
     Route: 042
  38. SODIUM CHLORIDE [Concomitant]
     Active Substance: SODIUM CHLORIDE
     Indication: Product used for unknown indication
     Dosage: 250 ML, QD
     Route: 042

REACTIONS (13)
  - Meningitis cryptococcal [Not Recovered/Not Resolved]
  - Optic neuritis [Not Recovered/Not Resolved]
  - Pseudomonas infection [Unknown]
  - Hyperkalaemia [Recovered/Resolved]
  - Osteonecrosis [Not Recovered/Not Resolved]
  - Cytomegalovirus viraemia [Recovered/Resolved]
  - Hyponatraemia [Recovered/Resolved]
  - COVID-19 [Unknown]
  - Hyperglycaemia [Unknown]
  - Spinal stenosis [Unknown]
  - Intervertebral disc protrusion [Unknown]
  - Anaemia [Unknown]
  - Product dose omission issue [Unknown]

NARRATIVE: CASE EVENT DATE: 20230201
